FAERS Safety Report 11599052 (Version 3)
Quarter: 2016Q4

REPORT INFORMATION
  Report Type: Spontaneous
  Country: US (occurrence: US)
  Receive Date: 20151006
  Receipt Date: 20161215
  Transmission Date: 20170206
  Serious: No
  Sender: FDA-Public Use
  Company Number: US-BAYER-2015-431242

PATIENT
  Sex: Male

DRUGS (48)
  1. CIPRO [Suspect]
     Active Substance: CIPROFLOXACIN HYDROCHLORIDE
     Indication: SINUSITIS
     Dosage: 500 MG, BID
     Dates: start: 20080309, end: 20080318
  2. CLONAZEPAM. [Concomitant]
     Active Substance: CLONAZEPAM
     Indication: HYPOAESTHESIA
     Dosage: UNK
     Dates: start: 200908
  3. CLONAZEPAM. [Concomitant]
     Active Substance: CLONAZEPAM
     Indication: PARAESTHESIA
  4. BUPROPION. [Concomitant]
     Active Substance: BUPROPION
     Indication: NEURALGIA
  5. IMITREX [Concomitant]
     Active Substance: SUMATRIPTAN SUCCINATE
     Indication: MIGRAINE
     Dosage: 50 MG, PRN
  6. HYDROXYZINE [Concomitant]
     Active Substance: HYDROXYZINE\HYDROXYZINE HYDROCHLORIDE
     Indication: NEURALGIA
     Dosage: UNK
     Dates: start: 200604, end: 201404
  7. HYDROXYZINE [Concomitant]
     Active Substance: HYDROXYZINE\HYDROXYZINE HYDROCHLORIDE
     Indication: PARAESTHESIA
  8. MONTELUKAST [Concomitant]
     Active Substance: MONTELUKAST SODIUM
     Indication: NEURALGIA
     Dosage: UNK
     Dates: start: 201406
  9. MONTELUKAST [Concomitant]
     Active Substance: MONTELUKAST SODIUM
     Indication: PARAESTHESIA
  10. MIRTAZAPINE. [Concomitant]
     Active Substance: MIRTAZAPINE
     Indication: PARAESTHESIA
     Dosage: UNK
     Dates: start: 200711
  11. METANX [Concomitant]
     Active Substance: LEVOMEFOLATE CALCIUM\METHYLCOBALAMIN\PYRIDOXAL PHOSPHATE ANHYDROUS
     Indication: HYPOAESTHESIA
  12. CIALIS [Concomitant]
     Active Substance: TADALAFIL
     Indication: SENSORY LOSS
     Dosage: UNK
     Dates: start: 200911
  13. RELPAX [Concomitant]
     Active Substance: ELETRIPTAN HYDROBROMIDE
     Indication: MIGRAINE
     Dosage: 20 MG, PRN
  14. CLONAZEPAM. [Concomitant]
     Active Substance: CLONAZEPAM
     Indication: NEURALGIA
     Dosage: UNK
     Dates: start: 200704, end: 200908
  15. GABAPENTIN. [Concomitant]
     Active Substance: GABAPENTIN
     Indication: NEURALGIA
     Dosage: UNK
     Dates: start: 200909
  16. METANX [Concomitant]
     Active Substance: LEVOMEFOLATE CALCIUM\METHYLCOBALAMIN\PYRIDOXAL PHOSPHATE ANHYDROUS
     Indication: NEURALGIA
  17. VITAMIN D2 [Concomitant]
     Active Substance: ERGOCALCIFEROL
     Indication: VITAMIN D DECREASED
     Dosage: UNK
     Dates: start: 201501, end: 201504
  18. MONTELUKAST [Concomitant]
     Active Substance: MONTELUKAST SODIUM
     Indication: HYPOAESTHESIA
  19. AMITRIPTYLINE [Concomitant]
     Active Substance: AMITRIPTYLINE
     Indication: HYPOAESTHESIA
     Dosage: UNK
     Dates: start: 200712
  20. AMITRIPTYLINE [Concomitant]
     Active Substance: AMITRIPTYLINE
     Indication: PARAESTHESIA
     Dosage: UNK
     Dates: start: 201407
  21. DULOXETINE. [Concomitant]
     Active Substance: DULOXETINE
     Indication: NEURALGIA
  22. CYPROHEPTADINE. [Concomitant]
     Active Substance: CYPROHEPTADINE
     Indication: PARAESTHESIA
  23. CROMOLYN SODIUM. [Concomitant]
     Active Substance: CROMOLYN SODIUM
     Indication: HYPOAESTHESIA
  24. MIRTAZAPINE. [Concomitant]
     Active Substance: MIRTAZAPINE
     Indication: HYPOAESTHESIA
     Dosage: UNK
     Dates: start: 200405
  25. BUPROPION. [Concomitant]
     Active Substance: BUPROPION
     Indication: DEPRESSION
     Dosage: UNK
     Dates: start: 200906
  26. VIAGRA [Concomitant]
     Active Substance: SILDENAFIL CITRATE
     Indication: HYPOAESTHESIA
     Dosage: UNK
     Dates: start: 200909
  27. AVELOX [Suspect]
     Active Substance: MOXIFLOXACIN HYDROCHLORIDE
     Indication: SINUSITIS
     Dosage: DAILY DOSE 400 MG
     Route: 048
     Dates: start: 20031230, end: 20040111
  28. AMOXICILLIN. [Concomitant]
     Active Substance: AMOXICILLIN
     Indication: GASTRIC INFECTION
  29. NORTRIPTYLINE [Concomitant]
     Active Substance: NORTRIPTYLINE
     Indication: MIGRAINE
     Dosage: UNK
     Dates: start: 200311, end: 201311
  30. CROMOLYN SODIUM. [Concomitant]
     Active Substance: CROMOLYN SODIUM
     Indication: NEURALGIA
     Dosage: UNK
     Dates: start: 201501
  31. MIRTAZAPINE. [Concomitant]
     Active Substance: MIRTAZAPINE
     Indication: NEURALGIA
     Dosage: UNK
     Dates: start: 200604
  32. DULOXETINE. [Concomitant]
     Active Substance: DULOXETINE
     Indication: HYPOAESTHESIA
  33. METANX [Concomitant]
     Active Substance: LEVOMEFOLATE CALCIUM\METHYLCOBALAMIN\PYRIDOXAL PHOSPHATE ANHYDROUS
     Indication: PARAESTHESIA
  34. AMOXICILLIN. [Concomitant]
     Active Substance: AMOXICILLIN
     Indication: SINUSITIS
     Dosage: UNK
     Dates: start: 20090513
  35. CROMOLYN SODIUM. [Concomitant]
     Active Substance: CROMOLYN SODIUM
     Indication: PARAESTHESIA
  36. NEXIUM [Concomitant]
     Active Substance: ESOMEPRAZOLE MAGNESIUM
     Indication: GASTROOESOPHAGEAL REFLUX DISEASE
     Dosage: 40 MG, PRN
  37. MELOXICAM. [Concomitant]
     Active Substance: MELOXICAM
  38. NORTRIPTYLINE [Concomitant]
     Active Substance: NORTRIPTYLINE
     Indication: NEURALGIA
  39. HYDROXYZINE [Concomitant]
     Active Substance: HYDROXYZINE\HYDROXYZINE HYDROCHLORIDE
     Indication: HYPOAESTHESIA
  40. CIMETIDINE [Concomitant]
     Active Substance: CIMETIDINE
     Indication: NEURALGIA
     Dosage: UNK
     Dates: start: 201411
  41. CIMETIDINE [Concomitant]
     Active Substance: CIMETIDINE
     Indication: HYPOAESTHESIA
     Dosage: UNK
     Dates: start: 201404
  42. CIMETIDINE [Concomitant]
     Active Substance: CIMETIDINE
     Indication: PARAESTHESIA
     Dosage: UNK
     Dates: start: 201405
  43. AMITRIPTYLINE [Concomitant]
     Active Substance: AMITRIPTYLINE
     Indication: NEURALGIA
     Dosage: UNK
     Dates: start: 200710
  44. GABAPENTIN. [Concomitant]
     Active Substance: GABAPENTIN
     Indication: DEPRESSION
     Dosage: UNK
     Dates: start: 200812
  45. DULOXETINE. [Concomitant]
     Active Substance: DULOXETINE
     Indication: PARAESTHESIA
     Dosage: UNK
     Dates: start: 201411
  46. VIAGRA [Concomitant]
     Active Substance: SILDENAFIL CITRATE
     Indication: SENSORY LOSS
  47. CYPROHEPTADINE. [Concomitant]
     Active Substance: CYPROHEPTADINE
     Indication: HYPOAESTHESIA
     Dosage: UNK
     Dates: start: 200608
  48. CYPROHEPTADINE. [Concomitant]
     Active Substance: CYPROHEPTADINE
     Indication: NEURALGIA

REACTIONS (10)
  - Anxiety [None]
  - Hypoaesthesia [None]
  - Injury [None]
  - Pain [None]
  - Paraesthesia [None]
  - Burning sensation [None]
  - Neuropathy peripheral [None]
  - Emotional distress [None]
  - Neuralgia [None]
  - Anhedonia [None]
